FAERS Safety Report 25900173 (Version 3)
Quarter: 2025Q4

REPORT INFORMATION
  Report Type: Report from Study
  Country: EU (occurrence: EU)
  Receive Date: 20251009
  Receipt Date: 20251106
  Transmission Date: 20260118
  Serious: Yes (Death, Hospitalization, Other)
  Sender: ABBVIE
  Company Number: EU-ABBVIE-6491789

PATIENT
  Age: 75 Year
  Sex: Male

DRUGS (17)
  1. CARBIDOPA\LEVODOPA [Suspect]
     Active Substance: CARBIDOPA\LEVODOPA
     Indication: Parkinson^s disease
     Dosage: MD: 7,0ML; CRT:: 2,0ML/H; ED: 1,0ML
     Route: 050
     Dates: start: 20170410
  2. CARBIDOPA\LEVODOPA [Suspect]
     Active Substance: CARBIDOPA\LEVODOPA
  3. GABAPENTIN [Concomitant]
     Active Substance: GABAPENTIN
     Indication: Product used for unknown indication
     Dosage: MORNING - 3?MIDDAY- 3?EVENING- 3?AT NIGHT- 3
  4. RASAGILINE [Concomitant]
     Active Substance: RASAGILINE
     Indication: Product used for unknown indication
     Dosage: MORNING- 1
  5. LORAZEPAM [Concomitant]
     Active Substance: LORAZEPAM
     Indication: Product used for unknown indication
     Dosage: EVENING- 1
  6. BENSERAZIDE\LEVODOPA [Concomitant]
     Active Substance: BENSERAZIDE\LEVODOPA
     Indication: Product used for unknown indication
     Dosage: 100/20 MG FOA: SUST. RELEASE CAPS?EVENING- 1
  7. CLONAZEPAM [Concomitant]
     Active Substance: CLONAZEPAM
     Indication: Product used for unknown indication
     Dosage: MORNING- 2 ?EVENING- 1
  8. CLOZAPINE [Concomitant]
     Active Substance: CLOZAPINE
     Indication: Product used for unknown indication
     Dosage: EVENING- 1
  9. NEBIVOLOL [Concomitant]
     Active Substance: NEBIVOLOL
     Indication: Product used for unknown indication
     Dosage: MORNING- 1/2
  10. DULOXETINE [Concomitant]
     Active Substance: DULOXETINE
     Indication: Product used for unknown indication
     Dosage: MORNING- 1
  11. BISACODYL [Concomitant]
     Active Substance: BISACODYL
     Indication: Product used for unknown indication
  12. ASPIRIN [Concomitant]
     Active Substance: ASPIRIN
     Indication: Product used for unknown indication
     Dosage: MORNING-1?MIDDAY-1?EVENING-1
  13. FLUTICASONE\FORMOTEROL [Concomitant]
     Active Substance: FLUTICASONE\FORMOTEROL
     Indication: Product used for unknown indication
     Dosage: 250/10 MG PUMP?MORNING-1 ?EVENING-1
  14. SULFAMETHOXAZOLE\TRIMETHOPRIM [Concomitant]
     Active Substance: SULFAMETHOXAZOLE\TRIMETHOPRIM
     Indication: Product used for unknown indication
     Dosage: 960 MG ONCE DAILY FOR ANOTHER 5 DAYS.
  15. Eubiol [Concomitant]
     Indication: Product used for unknown indication
  16. ACETYLCYSTEINE [Concomitant]
     Active Substance: ACETYLCYSTEINE
     Indication: Product used for unknown indication
     Dosage: MORNING-1?EVENING-1?AS NEEDED
  17. METAMIZOLE [Concomitant]
     Active Substance: METAMIZOLE
     Indication: Product used for unknown indication
     Dosage: DOSAGE: 500 MG/ML DROPS ?MORNING-30?EVENING-30?AS NEEDED 2 X 30 DROPS

REACTIONS (20)
  - Renal failure [Fatal]
  - Urinary tract infection [Not Recovered/Not Resolved]
  - Multiple organ dysfunction syndrome [Fatal]
  - General physical health deterioration [Unknown]
  - Bedridden [Unknown]
  - Haemorrhage urinary tract [Unknown]
  - Atelectasis [Unknown]
  - Gastroenteritis [Unknown]
  - Urinary tract infection [Unknown]
  - Inflammatory marker increased [Unknown]
  - Spinal osteoarthritis [Unknown]
  - Neck pain [Unknown]
  - Cervicobrachial syndrome [Unknown]
  - Transient ischaemic attack [Unknown]
  - Inguinal hernia [Unknown]
  - Hypertension [Unknown]
  - Chronic obstructive pulmonary disease [Unknown]
  - Lumbar spinal stenosis [Unknown]
  - Spinal claudication [Unknown]
  - Bacterial infection [Unknown]

NARRATIVE: CASE EVENT DATE: 20200101
